FAERS Safety Report 7216177-9 (Version None)
Quarter: 2011Q1

REPORT INFORMATION
  Report Type: 
  Country: None (occurrence: None)
  Receive Date: 20110107
  Receipt Date: 20110104
  Transmission Date: 20110831
  Serious: Yes (Other)
  Sender: FDA-Public Use
  Company Number: GB-PFIZER INC-2011001117

PATIENT
  Age: 75 Year
  Sex: Male

DRUGS (3)
  1. DIFLUCAN [Concomitant]
     Indication: FUNGAL INFECTION
  2. DILTIAZEM [Concomitant]
  3. ALDACTONE [Suspect]
     Indication: CARDIAC FAILURE
     Dosage: 50 MG, UNK

REACTIONS (3)
  - ALOPECIA [None]
  - PRURITUS [None]
  - PLATELET COUNT DECREASED [None]
